FAERS Safety Report 6031317-5 (Version None)
Quarter: 2008Q4

REPORT INFORMATION
  Report Type: 
  Country: None (occurrence: None)
  Receive Date: 20081224
  Receipt Date: 20081009
  Transmission Date: 20090506
  Serious: Yes (Other)
  Sender: FDA-Public Use
  Company Number: US-CVT-080089

PATIENT
  Sex: Female

DRUGS (3)
  1. RANEXA [Suspect]
     Indication: CHEST PAIN
     Dosage: ORAL
     Route: 048
     Dates: start: 20080901
  2. ASPIRIN [Concomitant]
  3. PLAVIX [Concomitant]

REACTIONS (1)
  - THROMBOCYTOPENIA [None]
